FAERS Safety Report 8914454 (Version 3)
Quarter: 2012Q4

REPORT INFORMATION
  Report Type: Report from Study
  Country: US (occurrence: US)
  Receive Date: 20121119
  Receipt Date: 20121217
  Transmission Date: 20130627
  Serious: Yes (Hospitalization)
  Sender: FDA-Public Use
  Company Number: US-JNJFOC-20121107427

PATIENT
  Age: 18 Year
  Sex: Female
  Weight: 76.3 kg

DRUGS (10)
  1. REMICADE [Suspect]
     Indication: COLITIS ULCERATIVE
     Route: 042
     Dates: start: 20090601
  2. 5-ASA [Concomitant]
     Route: 054
  3. AZATHIOPRINE [Concomitant]
  4. OMEPRAZOLE [Concomitant]
  5. PREDNISONE [Concomitant]
  6. ZOFRAN [Concomitant]
  7. DIFLUCAN [Concomitant]
  8. SEPTRA [Concomitant]
  9. NITROFURANTOIN [Concomitant]
  10. LUTERA (LEVONORGESTREL AND ETHINYL ESTRADIOL) [Concomitant]

REACTIONS (1)
  - Colitis ulcerative [Recovered/Resolved with Sequelae]
